FAERS Safety Report 8959812 (Version 1)
Quarter: 2012Q4

REPORT INFORMATION
  Report Type: 
  Country: US (occurrence: US)
  Receive Date: 20121212
  Receipt Date: 20121212
  Transmission Date: 20130627
  Serious: No
  Sender: FDA-Public Use
  Company Number: US-TEVA-333436USA

PATIENT
  Sex: Female

DRUGS (1)
  1. BUDESONIDE [Suspect]
     Dosage: 0.5 mg/2 ml

REACTIONS (6)
  - Vision blurred [Unknown]
  - Memory impairment [Unknown]
  - Muscular weakness [Unknown]
  - Arthralgia [Unknown]
  - Fatigue [Unknown]
  - Dysphonia [Unknown]
